FAERS Safety Report 8596210 (Version 2)
Quarter: 2013Q2

REPORT INFORMATION
  Report Type: Spontaneous
  Country: US (occurrence: US)
  Receive Date: 20120605
  Receipt Date: 20130618
  Transmission Date: 20140414
  Serious: Yes (Hospitalization, Disabling)
  Sender: FDA-Public Use
  Company Number: US-ASTRAZENECA-2012SE34811

PATIENT
  Sex: Female

DRUGS (40)
  1. NEXIUM [Suspect]
     Indication: GASTROOESOPHAGEAL REFLUX DISEASE
     Dosage: ONCE A DAY
     Route: 048
  2. NEXIUM [Suspect]
     Indication: GASTROOESOPHAGEAL REFLUX DISEASE
     Route: 048
     Dates: start: 20090313
  3. PRILOSEC [Suspect]
     Indication: GASTROOESOPHAGEAL REFLUX DISEASE
     Route: 048
     Dates: start: 20101220
  4. PROTONIX [Concomitant]
     Dates: start: 20080908
  5. PREVACID [Concomitant]
  6. ZEGERID [Concomitant]
     Dosage: 40-1100
     Dates: start: 20070906
  7. MYLANTA [Concomitant]
  8. PEPTO BISMOL [Concomitant]
  9. SUCRALFATE [Concomitant]
     Indication: ABDOMINAL PAIN UPPER
     Dates: start: 20120514
  10. ALKA SELTZER [Concomitant]
  11. TUMS [Concomitant]
  12. MILK OF MAGNESIA [Concomitant]
  13. ROLAIDS [Concomitant]
  14. LISINOPRIL [Concomitant]
     Indication: BLOOD PRESSURE ABNORMAL
  15. HYDROCODO/ACETAMINOP [Concomitant]
     Indication: PAIN
  16. ZOLPIDEM [Concomitant]
     Indication: SLEEP DISORDER
     Dates: start: 20070416
  17. LORATADINE [Concomitant]
     Indication: HYPERSENSITIVITY
     Dates: start: 20091202
  18. LYRICA [Concomitant]
     Indication: FIBROMYALGIA
     Dates: start: 20070906
  19. LYRICA [Concomitant]
     Indication: FIBROMYALGIA
     Dates: start: 20071227
  20. CYCLOBENZAPRINE [Concomitant]
     Indication: MYALGIA
     Dates: start: 20090811
  21. ALLERX DF [Concomitant]
     Dates: start: 20070409
  22. MICARDIS HCT [Concomitant]
     Dosage: 40/12.5
     Dates: start: 20070409
  23. MICARDIS HCT [Concomitant]
     Dosage: 80/25 MG
     Dates: start: 20071101
  24. BALACET [Concomitant]
     Dates: start: 20070912
  25. GEODON [Concomitant]
     Dates: start: 20071101
  26. DEXAMETHASON [Concomitant]
     Dates: start: 20080204
  27. ETODOLAC [Concomitant]
     Dates: start: 20080204
  28. AMITIZA [Concomitant]
     Dates: start: 20080909
  29. CYMBALTA [Concomitant]
     Dates: start: 20081210
  30. AMOXICILLIN [Concomitant]
     Dates: start: 20090212
  31. PIROXICAM [Concomitant]
     Dates: start: 20090303
  32. AVELOX [Concomitant]
     Dates: start: 20090313
  33. PROAIR HFA [Concomitant]
     Dates: start: 20090313
  34. METOPROLOL TARTRATE [Concomitant]
     Dates: start: 20090422
  35. BENZONATATE [Concomitant]
     Dates: start: 20091202
  36. CEFDINIR [Concomitant]
     Dates: start: 20100309
  37. AZITHROMYCIN [Concomitant]
     Dates: start: 20100629
  38. KLOR-CON [Concomitant]
     Dates: start: 20100629
  39. FLUCONAZOLE [Concomitant]
     Dates: start: 20101019
  40. LISINOP/ HCTZ [Concomitant]
     Dosage: 20-25 MG
     Dates: start: 20110421

REACTIONS (9)
  - Back injury [Unknown]
  - Gallbladder disorder [Unknown]
  - Cardiac disorder [Unknown]
  - Renal haemorrhage [Unknown]
  - Arthropathy [Unknown]
  - Osteoporosis [Unknown]
  - Arthritis [Unknown]
  - Multiple fractures [Unknown]
  - Carpal tunnel syndrome [Unknown]
